FAERS Safety Report 6317588-6 (Version None)
Quarter: 2009Q3

REPORT INFORMATION
  Report Type: 
  Country: None (occurrence: None)
  Receive Date: 20090821
  Receipt Date: 20090814
  Transmission Date: 20100115
  Serious: Yes (Other)
  Sender: FDA-Public Use
  Company Number: GB-ROCHE-651124

PATIENT
  Age: 9 Year
  Sex: Female

DRUGS (3)
  1. TAMIFLU [Suspect]
     Dosage: DISCONTINUED.
     Route: 065
     Dates: start: 20090802, end: 20090803
  2. ACETAMINOPHEN [Concomitant]
  3. SALBUTAMOL [Concomitant]

REACTIONS (3)
  - CONFUSIONAL STATE [None]
  - NIGHTMARE [None]
  - VOMITING [None]
